FAERS Safety Report 22226888 (Version 1)
Quarter: 2023Q2

REPORT INFORMATION
  Report Type: Spontaneous
  Country: FR (occurrence: FR)
  Receive Date: 20230419
  Receipt Date: 20230419
  Transmission Date: 20230722
  Serious: Yes (Hospitalization)
  Sender: FDA-Public Use
  Company Number: FR-AFSSAPS-AN2023000528

PATIENT
  Age: 55 Year
  Sex: Male
  Weight: 126.9 kg

DRUGS (8)
  1. METFORMIN [Suspect]
     Active Substance: METFORMIN HYDROCHLORIDE
     Indication: Type 2 diabetes mellitus
     Dosage: 2 GRAM, ONCE A DAY
     Route: 048
  2. ATORVASTATIN [Concomitant]
     Active Substance: ATORVASTATIN
     Indication: Product used for unknown indication
     Dosage: 80 MILLIGRAM, ONCE A DAY
     Route: 048
  3. AUGMENTIN [Concomitant]
     Active Substance: AMOXICILLIN\CLAVULANATE POTASSIUM
     Indication: Paronychia
     Dosage: 1 DOSAGE FORM (1 TOTAL)
     Route: 048
     Dates: start: 20221010, end: 20221010
  4. ESOMEPRAZOLE [Concomitant]
     Active Substance: ESOMEPRAZOLE
     Indication: Product used for unknown indication
     Dosage: 20 MILLIGRAM, ONCE A DAY
     Route: 048
     Dates: end: 20221010
  5. AMLODIPINE [Concomitant]
     Active Substance: AMLODIPINE BESYLATE
     Indication: Product used for unknown indication
     Dosage: 10 MILLIGRAM, ONCE A DAY
     Route: 048
     Dates: end: 20221010
  6. EBASTINE [Concomitant]
     Active Substance: EBASTINE
     Indication: Product used for unknown indication
     Dosage: 1 DOSAGE FORM, AS NECESSARY
     Route: 048
  7. PERINDOPRIL [Concomitant]
     Active Substance: PERINDOPRIL
     Indication: Product used for unknown indication
     Dosage: 10 MILLIGRAM, ONCE A DAY
     Route: 048
     Dates: end: 20221010
  8. KARDEGIC [Concomitant]
     Active Substance: ASPIRIN DL-LYSINE
     Indication: Product used for unknown indication
     Dosage: 160 MILLIGRAM, ONCE A DAY
     Route: 048

REACTIONS (1)
  - Hyperlactacidaemia [Recovered/Resolved]

NARRATIVE: CASE EVENT DATE: 20221010
